FAERS Safety Report 10802809 (Version 1)
Quarter: 2015Q1

REPORT INFORMATION
  Report Type: Spontaneous
  Country: VN (occurrence: VN)
  Receive Date: 20150217
  Receipt Date: 20150217
  Transmission Date: 20150721
  Serious: Yes (Other)
  Sender: FDA-Public Use
  Company Number: VN-TEVA-538818USA

PATIENT
  Age: 34 Year
  Sex: Female

DRUGS (1)
  1. POSTINOR 1 [Suspect]
     Active Substance: LEVONORGESTREL
     Indication: POST COITAL CONTRACEPTION
     Route: 048
     Dates: start: 20150111, end: 20150111

REACTIONS (4)
  - Abortion induced [Unknown]
  - Drug ineffective [Unknown]
  - Abdominal discomfort [Unknown]
  - Pregnancy test urine positive [None]

NARRATIVE: CASE EVENT DATE: 201501
